FAERS Safety Report 9791221 (Version 3)
Quarter: 2014Q2

REPORT INFORMATION
  Report Type: Report from Study
  Country: JP (occurrence: JP)
  Receive Date: 20140101
  Receipt Date: 20140618
  Transmission Date: 20141212
  Serious: Yes (Other)
  Sender: FDA-Public Use
  Company Number: JP-AMGEN-JPNCT2013090872

PATIENT
  Age: 78 Year
  Sex: Female
  Weight: 61 kg

DRUGS (18)
  1. DENOSUMAB [Suspect]
     Indication: METASTASES TO BONE
     Dosage: 120 MG/2013/05/15, 06/12, 07/10, 08/07, 09/04
     Route: 058
     Dates: start: 20130515, end: 20130904
  2. AVASTIN                            /00848101/ [Concomitant]
     Dosage: UNKNOWN
     Route: 065
     Dates: start: 20130515, end: 20130918
  3. PACLITAXEL [Concomitant]
     Dosage: UNKNOWN
     Route: 050
     Dates: start: 20130515, end: 20130918
  4. ZOMETA [Concomitant]
     Dosage: 3 MG, QD
     Route: 042
     Dates: start: 20131009, end: 20140118
  5. ASPARA-CA [Concomitant]
     Dosage: 600 MG, QD
     Route: 048
     Dates: start: 20130515, end: 20130611
  6. ALFAROL [Concomitant]
     Dosage: 1 MUG, QD
     Route: 048
     Dates: start: 20130515, end: 20130611
  7. DENOTAS [Concomitant]
     Dosage: 2T/DAY
     Route: 048
     Dates: start: 20130612, end: 20131003
  8. DECADRON                           /00016001/ [Concomitant]
     Dosage: UNKNOWN
     Route: 050
     Dates: start: 20130515, end: 20130918
  9. XELODA [Concomitant]
     Dosage: UNKNOWN
     Route: 048
     Dates: start: 20131009, end: 20131223
  10. ENDOXAN                            /00021101/ [Concomitant]
     Dosage: UNKNOWN
     Route: 048
     Dates: start: 20131009, end: 20131223
  11. PARIET [Concomitant]
     Dosage: 10 MG, QD
     Route: 048
     Dates: end: 20131002
  12. PEON [Concomitant]
     Dosage: 240 MG, QD
     Route: 048
     Dates: end: 20131002
  13. MAGLAX [Concomitant]
     Dosage: 1500 MG, QD
     Route: 048
     Dates: end: 20131002
  14. PURSENNID                          /00142207/ [Concomitant]
     Dosage: 36 MG, QD
     Route: 048
     Dates: end: 20131002
  15. FENTANYL [Concomitant]
     Dosage: 0.84 MG, QD
     Route: 050
     Dates: start: 20130612, end: 20131028
  16. MAINTATE [Concomitant]
     Dosage: 2.5 MG, QD
     Route: 048
     Dates: start: 20131015
  17. AVASTIN                            /01555201/ [Concomitant]
     Dosage: 600 MG, QD
     Route: 050
     Dates: start: 20130515, end: 20130918
  18. STRONG NEO-MINOPHAGEN C [Concomitant]
     Dosage: 40 ML, QD
     Route: 042
     Dates: start: 20131002, end: 20131009

REACTIONS (2)
  - Osteonecrosis of jaw [Recovering/Resolving]
  - Liver disorder [Recovered/Resolved]
